FAERS Safety Report 7465158-9 (Version None)
Quarter: 2011Q2

REPORT INFORMATION
  Report Type: 
  Country: None (occurrence: None)
  Receive Date: 20110509
  Receipt Date: 20110505
  Transmission Date: 20111010
  Serious: Yes (Death)
  Sender: FDA-Public Use
  Company Number: FR-SANOFI-AVENTIS-2011SA011068

PATIENT
  Age: 54 Year
  Sex: Male
  Weight: 85 kg

DRUGS (3)
  1. ZOLPIDEM TARTRATE [Suspect]
     Indication: INSOMNIA
     Route: 048
     Dates: start: 20060529, end: 20060821
  2. ZYBAN [Concomitant]
     Indication: TOBACCO WITHDRAWAL SYMPTOMS
     Route: 048
     Dates: start: 20060519, end: 20060719
  3. KARDEGIC [Concomitant]
     Route: 048
     Dates: start: 20060529, end: 20060629

REACTIONS (6)
  - SUDDEN DEATH [None]
  - TACHYCARDIA [None]
  - MYOCARDIAL INFARCTION [None]
  - AFFECTIVE DISORDER [None]
  - DRUG INTERACTION [None]
  - ABNORMAL BEHAVIOUR [None]
